FAERS Safety Report 10622780 (Version 1)
Quarter: 2014Q4

REPORT INFORMATION
  Report Type: Spontaneous
  Country: US (occurrence: None)
  Receive Date: 20141202
  Receipt Date: 20141202
  Transmission Date: 20150529
  Serious: Yes (Hospitalization)
  Sender: FDA-Public Use
  Company Number: None

PATIENT
  Age: 27 Year
  Sex: Female
  Weight: 92.99 kg

DRUGS (1)
  1. SUMAVEL DOSEPRO [Suspect]
     Active Substance: SUMATRIPTAN SUCCINATE
     Indication: MIGRAINE
     Dosage: ONE INJECTION
     Route: 030

REACTIONS (4)
  - Incorrect dose administered by device [None]
  - Accidental exposure to product [None]
  - Migraine [None]
  - Device malfunction [None]

NARRATIVE: CASE EVENT DATE: 20141123
